FAERS Safety Report 5869226-4 (Version None)
Quarter: 2008Q3

REPORT INFORMATION
  Report Type: 
  Country: None (occurrence: None)
  Receive Date: 20080903
  Receipt Date: 20080822
  Transmission Date: 20090109
  Serious: Yes (Hospitalization)
  Sender: FDA-Public Use
  Company Number: US-ELI_LILLY_AND_COMPANY-US200808004693

PATIENT
  Age: 52 Year
  Sex: Male

DRUGS (3)
  1. HUMALOG [Suspect]
  2. LANTUS [Concomitant]
  3. ANTIBIOTICS [Concomitant]
     Indication: INJECTION SITE INFECTION

REACTIONS (3)
  - INJECTION SITE ERYTHEMA [None]
  - INJECTION SITE INFECTION [None]
  - SCAR [None]
